FAERS Safety Report 10079925 (Version 1)
Quarter: 2014Q2

REPORT INFORMATION
  Report Type: Spontaneous
  Country: US (occurrence: US)
  Receive Date: 20140415
  Receipt Date: 20140415
  Transmission Date: 20141212
  Serious: No
  Sender: FDA-Public Use
  Company Number: US-BAYER-2014-055343

PATIENT
  Age: 55 Year
  Sex: Female
  Weight: 133.79 kg

DRUGS (1)
  1. ALEVE GELCAPS [Suspect]
     Indication: ANALGESIC THERAPY
     Dosage: 2 DF, ONCE
     Route: 048
     Dates: start: 20140408, end: 20140408

REACTIONS (1)
  - Abdominal pain upper [Recovered/Resolved]
